FAERS Safety Report 7688216-2 (Version None)
Quarter: 2011Q3

REPORT INFORMATION
  Report Type: 
  Country: None (occurrence: None)
  Receive Date: 20110817
  Receipt Date: 20110623
  Transmission Date: 20111222
  Serious: No
  Sender: FDA-Public Use
  Company Number: US-GLAXOSMITHKLINE-A0932748A

PATIENT
  Age: 47 Year
  Sex: Male

DRUGS (16)
  1. SIMAVASTATIN [Concomitant]
  2. RAMIPRIL [Concomitant]
  3. FERATAB [Concomitant]
  4. INSULIN [Concomitant]
  5. VOTRIENT [Suspect]
     Indication: RENAL CELL CARCINOMA
     Dosage: 800MG FOUR TIMES PER DAY
     Route: 048
     Dates: start: 20110614
  6. NOVOLOG [Concomitant]
  7. UNKNOWN MEDICATION [Concomitant]
  8. GABAPENTIN [Concomitant]
  9. OMEPRAZOLE [Concomitant]
  10. METFORMIN HCL [Concomitant]
  11. PIOGLITAZONE [Concomitant]
  12. ASPIRIN [Concomitant]
  13. PRASUGREL [Concomitant]
  14. FERROUS SULFATE TAB [Concomitant]
  15. SPIRONOLACTONE [Concomitant]
  16. CARVEDILOL [Concomitant]

REACTIONS (2)
  - OVERDOSE [None]
  - CHEST PAIN [None]
